FAERS Safety Report 7731153-5 (Version None)
Quarter: 2011Q3

REPORT INFORMATION
  Report Type: 
  Country: None (occurrence: None)
  Receive Date: 20110906
  Receipt Date: 20110906
  Transmission Date: 20111222
  Serious: Yes (Life-Threatening, Other)
  Sender: FDA-Public Use
  Company Number: None

PATIENT
  Age: 29 Year
  Sex: Female
  Weight: 75.749 kg

DRUGS (1)
  1. CHANTIX [Suspect]
     Indication: SMOKING CESSATION THERAPY
     Dosage: 1MG
     Route: 048
     Dates: start: 20110826, end: 20110903

REACTIONS (9)
  - IMPULSIVE BEHAVIOUR [None]
  - MOOD SWINGS [None]
  - NERVOUSNESS [None]
  - AGGRESSION [None]
  - SUICIDAL IDEATION [None]
  - ANXIETY [None]
  - THINKING ABNORMAL [None]
  - DRUG DOSE OMISSION [None]
  - IMPAIRED WORK ABILITY [None]
